FAERS Safety Report 7366648-X (Version None)
Quarter: 2011Q1

REPORT INFORMATION
  Report Type: 
  Country: None (occurrence: None)
  Receive Date: 20110317
  Receipt Date: 20110317
  Transmission Date: 20110831
  Serious: No
  Sender: FDA-Public Use
  Company Number: None

PATIENT
  Age: 50 Year
  Sex: Female
  Weight: 77.1115 kg

DRUGS (2)
  1. PROPOFOL [Suspect]
     Indication: SEDATIVE THERAPY
     Dates: start: 20110314, end: 20110314
  2. PROPOFOL [Suspect]
     Indication: COLONOSCOPY
     Dates: start: 20110314, end: 20110314

REACTIONS (14)
  - PHARYNGEAL OEDEMA [None]
  - LACRIMATION INCREASED [None]
  - NAUSEA [None]
  - HEADACHE [None]
  - OROPHARYNGEAL PAIN [None]
  - PULMONARY CONGESTION [None]
  - CHILLS [None]
  - FATIGUE [None]
  - IMPAIRED WORK ABILITY [None]
  - VOMITING [None]
  - THROAT IRRITATION [None]
  - PRODUCTIVE COUGH [None]
  - RHINORRHOEA [None]
  - PYREXIA [None]
